FAERS Safety Report 7389959-0 (Version None)
Quarter: 2011Q2

REPORT INFORMATION
  Report Type: 
  Country: None (occurrence: None)
  Receive Date: 20110401
  Receipt Date: 20110324
  Transmission Date: 20111010
  Serious: Yes (Hospitalization)
  Sender: FDA-Public Use
  Company Number: US-ASTRAZENECA-2011SE14041

PATIENT
  Age: 66 Year
  Sex: Female
  Weight: 75.7 kg

DRUGS (9)
  1. SPIRIVA [Concomitant]
     Indication: DYSPNOEA
  2. FISH OIL [Concomitant]
  3. ALVESCO [Concomitant]
     Indication: DYSPNOEA
  4. VIT D [Concomitant]
  5. RHINOCORT [Suspect]
     Indication: MULTIPLE ALLERGIES
     Dosage: DAILY
     Route: 045
     Dates: start: 20050101
  6. MULTIVITAMIN [Concomitant]
  7. LEVOTHYROXINE SODIUM [Concomitant]
     Indication: THYROID DISORDER
  8. AMBIEN [Concomitant]
     Indication: SLEEP DISORDER
     Dosage: PRN
  9. ASPIRIN [Concomitant]

REACTIONS (1)
  - GALLBLADDER OPERATION [None]
